FAERS Safety Report 17373484 (Version 1)
Quarter: 2020Q1

REPORT INFORMATION
  Report Type: Report from Study
  Country: US (occurrence: US)
  Receive Date: 20200205
  Receipt Date: 20200205
  Transmission Date: 20200409
  Serious: Yes (Hospitalization)
  Sender: FDA-Public Use
  Company Number: US-GILEAD-2020-0449819

PATIENT
  Age: 52 Year
  Sex: Male

DRUGS (23)
  1. TRIKAFTA [Concomitant]
     Active Substance: ELEXACAFTOR\IVACAFTOR\TEZACAFTOR
  2. OXYCODONE AND ACETAMINOPHEN [Concomitant]
     Active Substance: ACETAMINOPHEN\OXYCODONE HYDROCHLORIDE
  3. SODIUM CHLORIDE. [Concomitant]
     Active Substance: SODIUM CHLORIDE
  4. AZITHROMYCIN ANHYDROUS. [Concomitant]
     Active Substance: AZITHROMYCIN ANHYDROUS
  5. MELATONIN [Concomitant]
     Active Substance: MELATONIN
  6. SELENIUM [Concomitant]
     Active Substance: SELENIUM
  7. CREON [Concomitant]
     Active Substance: PANCRELIPASE AMYLASE\PANCRELIPASE LIPASE\PANCRELIPASE PROTEASE
  8. IBUPROFEN. [Concomitant]
     Active Substance: IBUPROFEN
  9. TRESIBA [Concomitant]
     Active Substance: INSULIN DEGLUDEC
  10. OMEGA 3 [FISH OIL] [Concomitant]
     Active Substance: FISH OIL
  11. VENTOLIN [Concomitant]
     Active Substance: ALBUTEROL SULFATE
  12. SENNA-S [DOCUSATE SODIUM;SENNA ALEXANDRINA] [Concomitant]
  13. ANASTROZOLE. [Concomitant]
     Active Substance: ANASTROZOLE
  14. CAL MAG ZINC [Concomitant]
  15. HUMALOG [Concomitant]
     Active Substance: INSULIN LISPRO
  16. LORATADINE. [Concomitant]
     Active Substance: LORATADINE
  17. MVW COMPLETE FORMULATION D3000 [Concomitant]
  18. AZTREONAM LYSINE [Suspect]
     Active Substance: AZTREONAM LYSINE
     Indication: CYSTIC FIBROSIS
     Dosage: 75 MG, TID EVERY OTHER MONTH
     Route: 065
  19. TOBI [Concomitant]
     Active Substance: TOBRAMYCIN
  20. CLEARLAX [Concomitant]
     Active Substance: POLYETHYLENE GLYCOL 3350
  21. DOCUSATE SODIUM. [Concomitant]
     Active Substance: DOCUSATE SODIUM
  22. COLLAGEN [Concomitant]
     Active Substance: COLLAGEN
  23. TURMERIC [CURCUMA LONGA] [Concomitant]
     Active Substance: HERBALS\TURMERIC

REACTIONS (3)
  - Exostosis [Unknown]
  - Arthritis [Unknown]
  - Arthropathy [Unknown]
